FAERS Safety Report 5116709-0 (Version None)
Quarter: 2006Q3

REPORT INFORMATION
  Report Type: 
  Country: None (occurrence: None)
  Receive Date: 20060928
  Receipt Date: 20060920
  Transmission Date: 20061208
  Serious: Yes (Other)
  Sender: FDA-Public Use
  Company Number: BR-ROCHE-464298

PATIENT
  Age: 31 Year
  Sex: Female

DRUGS (4)
  1. ROACUTAN [Suspect]
     Indication: DRUG USE FOR UNKNOWN INDICATION
     Route: 048
     Dates: start: 20060215, end: 20060615
  2. ROACUTAN [Suspect]
     Dosage: INCREASED.
     Route: 048
     Dates: start: 20060615, end: 20060615
  3. ROACUTAN [Suspect]
     Dosage: DECREASED DUE TO SKIN DRYNESS.
     Route: 048
     Dates: start: 20060615, end: 20060915
  4. MICROVLAR [Concomitant]
     Indication: CONTRACEPTION
     Route: 048

REACTIONS (4)
  - DRY SKIN [None]
  - NO ADVERSE EFFECT [None]
  - PREGNANCY [None]
  - UNWANTED PREGNANCY [None]
